FAERS Safety Report 9054283 (Version 1)
Quarter: 2013Q1

REPORT INFORMATION
  Report Type: Spontaneous
  Country: DE (occurrence: DE)
  Receive Date: 20130208
  Receipt Date: 20130208
  Transmission Date: 20140127
  Serious: Yes (Hospitalization)
  Sender: FDA-Public Use
  Company Number: DE-GLAXOSMITHKLINE-D0078265A

PATIENT
  Age: 63 None
  Sex: Female
  Weight: 56.7 kg

DRUGS (15)
  1. ATRIANCE [Suspect]
     Indication: ACUTE LYMPHOCYTIC LEUKAEMIA RECURRENT
     Dosage: 1500MGM2 THREE TIMES PER DAY
     Route: 042
     Dates: start: 20121221, end: 20121225
  2. AMPHO-MORONAL [Concomitant]
     Dosage: 1ML FOUR TIMES PER DAY
     Route: 065
  3. CALCIUM CARBONATE + COLECALCIFEROL [Concomitant]
     Route: 048
  4. AMLODIPIN [Concomitant]
     Dosage: 5MG PER DAY
     Route: 065
  5. L-THYROXIN-HENNING [Concomitant]
     Dosage: 75UG PER DAY
     Route: 048
  6. COTRIM FORTE [Concomitant]
     Dosage: 960MG ALTERNATE DAYS
     Route: 048
  7. ACIC [Concomitant]
     Dosage: 200MG UNKNOWN
     Route: 048
  8. ZYLORIC [Concomitant]
     Dosage: 100MG PER DAY
     Route: 048
  9. MIRTAZAPIN [Concomitant]
     Dosage: 15MG PER DAY
     Route: 048
  10. HEPARIN + SODIUM CHLORIDE [Concomitant]
     Dosage: .5MLH CONTINUOUS
     Route: 042
  11. NACL 0.9% [Concomitant]
     Route: 042
  12. KCL SOLUTION [Concomitant]
     Dosage: 40MMOL PER DAY
     Route: 042
  13. MAGNESIUM VERLA [Concomitant]
     Route: 042
  14. PIPERACILLIN SODIUM + TAZOBACTAM SODIUM [Concomitant]
     Route: 042
  15. NEUPOGEN [Concomitant]
     Dosage: 30U6 PER DAY
     Route: 058

REACTIONS (2)
  - Disorientation [Recovering/Resolving]
  - Tremor [Recovering/Resolving]
